FAERS Safety Report 19437188 (Version 1)
Quarter: 2021Q2

REPORT INFORMATION
  Report Type: Other
  Country: US (occurrence: US)
  Receive Date: 20210618
  Receipt Date: 20210618
  Transmission Date: 20210717
  Serious: Yes (Hospitalization, Other)
  Sender: FDA-Public Use
  Company Number: US-ACORDA-ACO_169363_2021

PATIENT
  Age: 81 Year
  Sex: Male

DRUGS (2)
  1. INBRIJA [Suspect]
     Active Substance: LEVODOPA
     Indication: ON AND OFF PHENOMENON
  2. INBRIJA [Suspect]
     Active Substance: LEVODOPA
     Indication: PARKINSON^S DISEASE
     Dosage: 2 CAPSULES, PRN; NOT TO EXCEED 5 DOSES A DAY

REACTIONS (2)
  - Intestinal obstruction [Recovered/Resolved]
  - Neck surgery [Unknown]

NARRATIVE: CASE EVENT DATE: 20210524
